FAERS Safety Report 9176184 (Version 1)
Quarter: 2013Q1

REPORT INFORMATION
  Report Type: Spontaneous
  Country: US (occurrence: US)
  Receive Date: 20130321
  Receipt Date: 20130321
  Transmission Date: 20140127
  Serious: Yes (Hospitalization, Other)
  Sender: FDA-Public Use
  Company Number: US-AMGEN-USASP2013019415

PATIENT
  Sex: Female

DRUGS (1)
  1. PROCRIT [Suspect]
     Indication: DYSPLASIA
     Dosage: 40000 UNIT, QWK

REACTIONS (2)
  - Pulmonary embolism [Unknown]
  - Haemoglobin abnormal [Unknown]
